FAERS Safety Report 17375260 (Version 1)
Quarter: 2020Q1

REPORT INFORMATION
  Report Type: Spontaneous
  Country: DE (occurrence: DE)
  Receive Date: 20200205
  Receipt Date: 20200205
  Transmission Date: 20200409
  Serious: Yes (Other)
  Sender: FDA-Public Use
  Company Number: NVSC2020DE029035

PATIENT
  Sex: Male

DRUGS (2)
  1. TASIGNA [Suspect]
     Active Substance: NILOTINIB
     Indication: PRODUCT USED FOR UNKNOWN INDICATION
     Dosage: UNK
     Route: 065
     Dates: start: 201407, end: 201704
  2. TASIGNA [Suspect]
     Active Substance: NILOTINIB
     Dosage: (2-0-2)
     Route: 065
     Dates: start: 201705, end: 20200127

REACTIONS (4)
  - Recurrent cancer [Unknown]
  - Neuralgia [Unknown]
  - Gait disturbance [Unknown]
  - Cytogenetic analysis abnormal [Unknown]
